FAERS Safety Report 6940784-1 (Version None)
Quarter: 2010Q3

REPORT INFORMATION
  Report Type: 
  Country: None (occurrence: None)
  Receive Date: 20100817
  Receipt Date: 20100323
  Transmission Date: 20110219
  Serious: Yes (Other)
  Sender: FDA-Public Use
  Company Number: 20108510

PATIENT
  Age: 11 Year

DRUGS (1)
  1. LIORESAL [Suspect]
     Indication: MUSCLE SPASTICITY
     Dosage: 1613.7 MCG DAILY INTRATHECAL
     Route: 037

REACTIONS (1)
  - THERAPEUTIC RESPONSE DECREASED [None]
